FAERS Safety Report 8493779 (Version 4)
Quarter: 2013Q4

REPORT INFORMATION
  Report Type: Spontaneous
  Country: US (occurrence: US)
  Receive Date: 20120404
  Receipt Date: 20131014
  Transmission Date: 20140711
  Serious: Yes (Hospitalization)
  Sender: FDA-Public Use
  Company Number: US-PFIZER INC-2012081623

PATIENT
  Sex: Female
  Weight: 79.82 kg

DRUGS (29)
  1. CELEBREX [Suspect]
     Indication: PAIN
     Dosage: 200 MG, 1X/DAY
  2. CELEBREX [Suspect]
     Indication: RHEUMATOID ARTHRITIS
  3. CELEBREX [Suspect]
     Indication: ARTHRALGIA
  4. METHOTREXATE SODIUM [Suspect]
     Indication: PAIN
     Dosage: 25 MG/ML WEEKLY
  5. METHOTREXATE SODIUM [Suspect]
     Indication: RHEUMATOID ARTHRITIS
  6. PREDNISONE [Suspect]
     Indication: PAIN
     Dosage: 5 MG, 1X/DAY
  7. PREDNISONE [Suspect]
     Indication: RHEUMATOID ARTHRITIS
  8. MOTRIN [Suspect]
     Indication: RHEUMATOID ARTHRITIS
     Dosage: UNK
  9. MOTRIN [Suspect]
     Indication: PAIN
  10. MOTRIN [Suspect]
     Indication: ARTHRALGIA
  11. ASPIRIN [Suspect]
     Indication: PAIN
     Dosage: UNK
  12. ASPIRIN [Suspect]
     Indication: RHEUMATOID ARTHRITIS
  13. CORTISONE [Suspect]
     Indication: PAIN
     Dosage: UNK
  14. CORTISONE [Suspect]
     Indication: RHEUMATOID ARTHRITIS
  15. LEFLUNOMIDE [Suspect]
     Indication: PAIN
     Dosage: UNK
     Dates: start: 201210, end: 201212
  16. LEFLUNOMIDE [Suspect]
     Indication: RHEUMATOID ARTHRITIS
  17. REMICADE [Suspect]
     Indication: PAIN
     Dosage: UNK
  18. REMICADE [Suspect]
     Indication: RHEUMATOID ARTHRITIS
  19. REMICADE [Suspect]
     Indication: RHEUMATOID ARTHRITIS
  20. PLAQUENIL [Suspect]
     Indication: PAIN
     Dosage: UNK
  21. PLAQUENIL [Suspect]
     Indication: RHEUMATOID ARTHRITIS
  22. ORUDIS [Suspect]
     Indication: PAIN
     Dosage: UNK
  23. ORUDIS [Suspect]
     Indication: RHEUMATOID ARTHRITIS
  24. PROZAC [Suspect]
     Indication: PAIN
     Dosage: 120 MG, 2X/DAY
  25. PROZAC [Suspect]
     Indication: RHEUMATOID ARTHRITIS
  26. KENALOG [Suspect]
     Indication: PAIN
     Dosage: UNK, EVERY 3 MONTHS
  27. KENALOG [Suspect]
     Indication: RHEUMATOID ARTHRITIS
  28. FOLIC ACID [Concomitant]
     Dosage: 1 MG, 1X/DAY
  29. LEVOTHYROXINE [Concomitant]
     Indication: THYROID DISORDER
     Dosage: 75 MG, 1X/DAY

REACTIONS (14)
  - Muscle spasms [Unknown]
  - Tremor [Unknown]
  - Drug ineffective [Unknown]
  - Gastric disorder [Unknown]
  - Gastrooesophageal reflux disease [Unknown]
  - Vomiting projectile [Unknown]
  - Rash [Unknown]
  - Alopecia [Unknown]
  - Renal disorder [Unknown]
  - Vision blurred [Unknown]
  - Swelling [Unknown]
  - Activities of daily living impaired [Unknown]
  - Drug hypersensitivity [Unknown]
  - Blood glucose abnormal [Unknown]
